FAERS Safety Report 7950637-8 (Version None)
Quarter: 2011Q4

REPORT INFORMATION
  Report Type: 
  Country: None (occurrence: None)
  Receive Date: 20111130
  Receipt Date: 20111122
  Transmission Date: 20120403
  Serious: Yes (Other)
  Sender: FDA-Public Use
  Company Number: US-BRISTOL-MYERS SQUIBB COMPANY-16147613

PATIENT
  Age: 59 Year
  Sex: Male
  Weight: 101 kg

DRUGS (3)
  1. VALTREX [Concomitant]
  2. BARACLUDE [Suspect]
     Indication: HEPATIC CIRRHOSIS
     Dosage: ALSO 0.5MG PER DAY
     Route: 048
     Dates: start: 20060306, end: 20110601
  3. BARACLUDE [Suspect]
     Indication: HEPATITIS B
     Dosage: ALSO 0.5MG PER DAY
     Route: 048
     Dates: start: 20060306, end: 20110601

REACTIONS (5)
  - DISTURBANCE IN ATTENTION [None]
  - FATIGUE [None]
  - STRESS [None]
  - MENTAL IMPAIRMENT [None]
  - JUDGEMENT IMPAIRED [None]
